FAERS Safety Report 4416921-X (Version None)
Quarter: 2004Q3

REPORT INFORMATION
  Report Type: 
  Country: None (occurrence: None)
  Receive Date: 20040804
  Receipt Date: 20040804
  Transmission Date: 20050211
  Serious: Yes (Death)
  Sender: FDA-Public Use
  Company Number: None

PATIENT
  Sex: Female
  Weight: 79.9 kg

DRUGS (4)
  1. TARCEVA [Suspect]
     Indication: PANCREATIC CARCINOMA METASTATIC
     Dosage: 100 MG QD ORAL
     Route: 048
     Dates: start: 20040221, end: 20040402
  2. CAPECITABINE [Suspect]
     Indication: PANCREATIC CARCINOMA METASTATIC
     Dosage: 1500 MG BID ORAL
     Route: 048
     Dates: start: 20040220, end: 20040325
  3. OXYCODONE HCL [Concomitant]
  4. MS CONTIN [Concomitant]

REACTIONS (1)
  - DISEASE PROGRESSION [None]
